FAERS Safety Report 23644514 (Version 2)
Quarter: 2024Q2

REPORT INFORMATION
  Report Type: Spontaneous
  Country: US (occurrence: US)
  Receive Date: 20240318
  Receipt Date: 20240424
  Transmission Date: 20240716
  Serious: Yes (Hospitalization)
  Sender: FDA-Public Use
  Company Number: US-ELI_LILLY_AND_COMPANY-US202403005110

PATIENT
  Age: 59 Year
  Sex: Male

DRUGS (3)
  1. RETEVMO [Suspect]
     Active Substance: SELPERCATINIB
     Indication: Product used for unknown indication
     Dosage: 80 MG, UNKNOWN
     Route: 048
     Dates: start: 202402
  2. RETEVMO [Suspect]
     Active Substance: SELPERCATINIB
     Dosage: 160 MG, UNKNOWN
     Route: 048
  3. RETEVMO [Suspect]
     Active Substance: SELPERCATINIB
     Dosage: 160 MG, UNKNOWN
     Route: 048

REACTIONS (4)
  - Thrombosis [Recovered/Resolved]
  - Pain in extremity [Recovering/Resolving]
  - Muscle discomfort [Recovering/Resolving]
  - Peripheral swelling [Recovered/Resolved]
